FAERS Safety Report 13412942 (Version 2)
Quarter: 2019Q4

REPORT INFORMATION
  Report Type: Spontaneous
  Country: US (occurrence: US)
  Receive Date: 20170407
  Receipt Date: 20191217
  Transmission Date: 20200122
  Serious: Yes (Other)
  Sender: FDA-Public Use
  Company Number: US-PFIZER INC-2017153922

PATIENT
  Age: 63 Year
  Sex: Male

DRUGS (6)
  1. PREVACID [Concomitant]
     Active Substance: LANSOPRAZOLE
     Indication: GASTROOESOPHAGEAL REFLUX DISEASE
     Dosage: UNK
  2. VITAMIN C [Concomitant]
     Active Substance: ASCORBIC ACID
     Indication: ROUTINE HEALTH MAINTENANCE
     Dosage: UNK
     Dates: start: 2010
  3. PROBIOTIC [Concomitant]
     Active Substance: PROBIOTICS NOS
     Indication: ROUTINE HEALTH MAINTENANCE
     Dosage: UNK
     Dates: start: 2010
  4. CIALIS [Suspect]
     Active Substance: TADALAFIL
     Indication: ERECTILE DYSFUNCTION
     Dosage: 10 MG, 2X/WEEK (30 MINUTES PRIOR TO SEXUAL ACTIVITY)
     Route: 048
     Dates: start: 20140516, end: 201411
  5. PREVACID 24 HR [Concomitant]
     Active Substance: LANSOPRAZOLE
     Indication: GASTROOESOPHAGEAL REFLUX DISEASE
     Dosage: UNK
     Dates: start: 2018
  6. VIAGRA [Suspect]
     Active Substance: SILDENAFIL CITRATE
     Indication: ERECTILE DYSFUNCTION
     Dosage: 50 MG, AS NEEDED (APPROXIMATELY 2 TIMES PER WEEK)
     Route: 048
     Dates: start: 20090610, end: 20140516

REACTIONS (5)
  - Malignant melanoma [Unknown]
  - Melanoma recurrent [Unknown]
  - Anxiety [Unknown]
  - Malignant melanoma in situ [Unknown]
  - Emotional distress [Unknown]

NARRATIVE: CASE EVENT DATE: 20100727
